FAERS Safety Report 22260923 (Version 1)
Quarter: 2023Q2

REPORT INFORMATION
  Report Type: Spontaneous
  Country: US (occurrence: None)
  Receive Date: 20230427
  Receipt Date: 20230427
  Transmission Date: 20230721
  Serious: Yes (Other)
  Sender: FDA-Public Use
  Company Number: None

PATIENT
  Age: 77 Year
  Sex: Female
  Weight: 107.55 kg

DRUGS (2)
  1. REMICADE [Suspect]
     Active Substance: INFLIXIMAB
  2. REMICADE [Concomitant]
     Active Substance: INFLIXIMAB
     Dates: start: 20230426, end: 20230426

REACTIONS (3)
  - Infusion related reaction [None]
  - Headache [None]
  - Nausea [None]

NARRATIVE: CASE EVENT DATE: 20230426
